FAERS Safety Report 7372494-3 (Version None)
Quarter: 2011Q1

REPORT INFORMATION
  Report Type: 
  Country: None (occurrence: None)
  Receive Date: 20110324
  Receipt Date: 20110317
  Transmission Date: 20110831
  Serious: Yes (Hospitalization)
  Sender: FDA-Public Use
  Company Number: JP-ROCHE-688600

PATIENT
  Sex: Male
  Weight: 57 kg

DRUGS (25)
  1. PREDONINE [Suspect]
     Route: 048
     Dates: start: 20091016, end: 20091023
  2. PREDONINE [Suspect]
     Route: 048
     Dates: start: 20100105, end: 20100118
  3. PREDONINE [Suspect]
     Route: 048
     Dates: start: 20100302, end: 20100315
  4. PARIET [Concomitant]
     Route: 048
     Dates: start: 20091010
  5. PREDONINE [Suspect]
     Indication: CASTLEMAN'S DISEASE
     Route: 048
     Dates: start: 20091013, end: 20091016
  6. PREDONINE [Suspect]
     Route: 048
     Dates: start: 20100216, end: 20100301
  7. PREDNISOLONE [Suspect]
     Dosage: FORM: PERORAL AGENT
     Route: 048
     Dates: start: 20100316, end: 20110103
  8. BAKTAR [Concomitant]
     Route: 048
     Dates: start: 20091021
  9. TOCILIZUMAB [Suspect]
     Indication: CASTLEMAN'S DISEASE
     Route: 041
     Dates: start: 20091209, end: 20100105
  10. PREDONINE [Suspect]
     Route: 048
     Dates: start: 20091205, end: 20091221
  11. PREDNISOLONE [Suspect]
     Route: 048
     Dates: start: 20110104
  12. TOCILIZUMAB [Suspect]
     Dosage: ACTION TAKEN: CONTINUED
     Route: 041
     Dates: start: 20100119
  13. PREDONINE [Suspect]
     Route: 048
     Dates: start: 20091121, end: 20091204
  14. PRIDOL [Suspect]
     Indication: CASTLEMAN'S DISEASE
     Route: 041
     Dates: start: 20091010, end: 20091012
  15. PREDONINE [Suspect]
     Route: 048
     Dates: start: 20100202, end: 20100215
  16. GLAKAY [Concomitant]
     Route: 048
     Dates: start: 20100216, end: 20100817
  17. PASETOCIN [Concomitant]
     Dosage: FORM: PER ORAL AGENT
     Route: 048
     Dates: start: 20100316, end: 20100322
  18. PREDNISOLONE [Suspect]
     Indication: CASTLEMAN'S DISEASE
     Dosage: FORM: PERORAL AGENT
     Route: 048
     Dates: start: 20100302, end: 20100315
  19. PREDONINE [Suspect]
     Route: 048
     Dates: start: 20091024, end: 20091106
  20. PREDONINE [Suspect]
     Route: 048
     Dates: start: 20091107, end: 20091120
  21. PREDONINE [Suspect]
     Route: 048
     Dates: start: 20091222, end: 20100104
  22. PREDONINE [Suspect]
     Route: 048
     Dates: start: 20100119, end: 20100201
  23. ALENDRONATE SODIUM [Concomitant]
     Route: 048
     Dates: start: 20100817, end: 20101207
  24. AUGMENTIN [Concomitant]
     Route: 048
     Dates: start: 20100208, end: 20100216
  25. ALENDRONATE SODIUM [Concomitant]
     Route: 048
     Dates: start: 20091026, end: 20100201

REACTIONS (2)
  - GINGIVITIS [None]
  - BRAIN NEOPLASM [None]
